FAERS Safety Report 7798865-9 (Version None)
Quarter: 2011Q4

REPORT INFORMATION
  Report Type: 
  Country: None (occurrence: None)
  Receive Date: 20111006
  Receipt Date: 20110929
  Transmission Date: 20120403
  Serious: Yes (Hospitalization, Other)
  Sender: FDA-Public Use
  Company Number: US-JNJFOC-20100205406

PATIENT
  Sex: Female

DRUGS (1)
  1. LEVAQUIN [Suspect]
     Indication: INFECTION
     Route: 048
     Dates: start: 20080501, end: 20080601

REACTIONS (3)
  - ROTATOR CUFF SYNDROME [None]
  - TENDON RUPTURE [None]
  - LIGAMENT RUPTURE [None]
